FAERS Safety Report 6672063-4 (Version None)
Quarter: 2010Q2

REPORT INFORMATION
  Report Type: 
  Country: None (occurrence: None)
  Receive Date: 20100406
  Receipt Date: 20100216
  Transmission Date: 20101027
  Serious: Yes (Hospitalization, Other)
  Sender: FDA-Public Use
  Company Number: UK-ACCORD-001865

PATIENT
  Age: 9 Year
  Sex: Male

DRUGS (4)
  1. MYCOPHENOLATE MOFETIL [Suspect]
     Indication: RENAL TRANSPLANT
     Dosage: 600.00-MG/M2
  2. PREDNISONE TAB [Concomitant]
  3. TACROLIMUS [Concomitant]
  4. RANITIDINE [Concomitant]

REACTIONS (9)
  - BLOOD ALBUMIN DECREASED [None]
  - COLITIS [None]
  - DIARRHOEA HAEMORRHAGIC [None]
  - GRAFT VERSUS HOST DISEASE [None]
  - HAEMATOCRIT DECREASED [None]
  - HAEMOGLOBIN DECREASED [None]
  - OESOPHAGITIS [None]
  - TACHYCARDIA [None]
  - THERAPEUTIC AGENT TOXICITY [None]
